FAERS Safety Report 18985598 (Version 2)
Quarter: 2023Q1

REPORT INFORMATION
  Report Type: Spontaneous
  Country: US (occurrence: US)
  Receive Date: 20210309
  Receipt Date: 20230110
  Transmission Date: 20230418
  Serious: Yes (Hospitalization, Other)
  Sender: FDA-Public Use
  Company Number: US-PFIZER INC-2021243668

PATIENT
  Age: 69 Year
  Sex: Male
  Weight: 97.52 kg

DRUGS (2)
  1. METAXALONE [Suspect]
     Active Substance: METAXALONE
     Indication: Back pain
     Dosage: 100 MG, 3X/DAY
     Route: 048
     Dates: start: 20210212, end: 20210217
  2. METAXALONE [Suspect]
     Active Substance: METAXALONE
     Dosage: 800 MG

REACTIONS (11)
  - Fall [Unknown]
  - Dizziness [Recovered/Resolved]
  - Dysstasia [Unknown]
  - Hallucination, tactile [Recovered/Resolved]
  - Tremor [Recovered/Resolved]
  - Dry mouth [Recovered/Resolved]
  - Musculoskeletal chest pain [Unknown]
  - Back pain [Unknown]
  - Memory impairment [Unknown]
  - Head injury [Unknown]
  - Feeling abnormal [Unknown]

NARRATIVE: CASE EVENT DATE: 20210213
